FAERS Safety Report 6366383-0 (Version None)
Quarter: 2009Q3

REPORT INFORMATION
  Report Type: 
  Country: None (occurrence: None)
  Receive Date: 20090915
  Receipt Date: 20090908
  Transmission Date: 20100115
  Serious: Yes (Other)
  Sender: FDA-Public Use
  Company Number: 2009SP024185

PATIENT
  Age: 74 Year
  Sex: Male

DRUGS (3)
  1. DANAPAROID SODIUM (S-P) (DANAPAROID SODIUM) [Suspect]
     Indication: HEPARIN-INDUCED THROMBOCYTOPENIA
     Dosage: 750 IU; BID; SC
     Route: 058
  2. UNFRACTIONATED HEPARIN (HEPARIN) [Suspect]
     Indication: CARDIOPULMONARY BYPASS
  3. FRAGMIN [Suspect]
     Indication: CARDIOPULMONARY BYPASS

REACTIONS (2)
  - HEPARIN-INDUCED THROMBOCYTOPENIA [None]
  - VENOUS THROMBOSIS [None]
